FAERS Safety Report 15889302 (Version 2)
Quarter: 2020Q1

REPORT INFORMATION
  Report Type: Spontaneous
  Country: JP (occurrence: JP)
  Receive Date: 20190130
  Receipt Date: 20200115
  Transmission Date: 20200409
  Serious: Yes (Death, Other)
  Sender: FDA-Public Use
  Company Number: JP-EISAI MEDICAL RESEARCH-EC-2019-050950

PATIENT

DRUGS (1)
  1. LENVIMA [Suspect]
     Active Substance: LENVATINIB
     Indication: HEPATOCELLULAR CARCINOMA
     Dosage: DOSE AND FREQUENCY UNKNOWN
     Route: 048
     Dates: start: 201812, end: 201901

REACTIONS (4)
  - Tumour lysis syndrome [Not Recovered/Not Resolved]
  - Hepatic encephalopathy [Unknown]
  - Acute hepatic failure [Fatal]
  - Cholangitis [Unknown]

NARRATIVE: CASE EVENT DATE: 2019
